FAERS Safety Report 9739151 (Version 1)
Quarter: 2013Q4

REPORT INFORMATION
  Report Type: Spontaneous
  Country: JP (occurrence: JP)
  Receive Date: 20131209
  Receipt Date: 20131209
  Transmission Date: 20140711
  Serious: Yes (Other)
  Sender: FDA-Public Use
  Company Number: JP-ASTELLAS-2013JP013465

PATIENT
  Age: 52 Year
  Sex: Male

DRUGS (3)
  1. PROGRAF [Suspect]
     Indication: COLITIS ULCERATIVE
     Route: 065
  2. ADALIMUMAB [Concomitant]
     Indication: COLITIS ULCERATIVE
     Route: 065
  3. CORTICOSTEROID NOS [Concomitant]
     Indication: COLITIS ULCERATIVE
     Route: 042

REACTIONS (2)
  - Drug ineffective [Unknown]
  - Colitis ulcerative [Recovering/Resolving]
